FAERS Safety Report 4569642-7 (Version None)
Quarter: 2005Q1

REPORT INFORMATION
  Report Type: 
  Country: None (occurrence: None)
  Receive Date: 20050201
  Receipt Date: 20050119
  Transmission Date: 20050727
  Serious: Yes (Death, Hospitalization, Other)
  Sender: FDA-Public Use
  Company Number: JP-2005-000051

PATIENT
  Age: 41 Year
  Sex: Female
  Weight: 56 kg

DRUGS (14)
  1. FLUDARA [Suspect]
     Indication: BONE MARROW TRANSPLANT
     Dosage: SEE IMAGE
     Route: 042
     Dates: start: 20040723, end: 20040728
  2. FLUDARA [Suspect]
     Indication: BONE MARROW TRANSPLANT
     Dosage: SEE IMAGE
     Route: 042
     Dates: start: 20040930, end: 20041002
  3. CYTARABINE [Concomitant]
  4. ETOPOSIDE [Concomitant]
  5. CYCLOPHOSPHAMIDE [Concomitant]
  6. FK 506 (TACROLIMUS) [Concomitant]
  7. MYCOPHENOLATE MOFETIL (MYCOPHENOLATE MOFETIL_) [Concomitant]
  8. METHOTREXATE [Concomitant]
  9. METHYLPREDNISOLONE [Concomitant]
  10. G-CSF (GRANULOCYTE COLONY STIMULATING FACTOR) [Concomitant]
  11. REMICADE [Concomitant]
  12. ZETBULIN (ANTILYMPHOCYTE IMMUNOGLOBULIN (RABBIT) [Concomitant]
  13. ATG (ANTITHYMOCYTE IMMUNOGLOBULIN(RABBIT) [Concomitant]
  14. PREDNISOLONE [Concomitant]

REACTIONS (18)
  - CHOLANGITIS [None]
  - GASTROINTESTINAL DISORDER [None]
  - GRAFT VERSUS HOST DISEASE [None]
  - HAEMOLYTIC ANAEMIA [None]
  - HALLUCINATION [None]
  - HEPATIC ENCEPHALOPATHY [None]
  - HEPATIC FAILURE [None]
  - LIVER DISORDER [None]
  - LOSS OF CONSCIOUSNESS [None]
  - LUMBAR VERTEBRAL FRACTURE [None]
  - NEUTROPENIA [None]
  - PALMAR ERYTHEMA [None]
  - PLATELET COUNT DECREASED [None]
  - RESTLESSNESS [None]
  - SKIN DISORDER [None]
  - THERAPY NON-RESPONDER [None]
  - THROMBOTIC MICROANGIOPATHY [None]
  - VIRAL HAEMORRHAGIC CYSTITIS [None]
